FAERS Safety Report 9417663 (Version 1)
Quarter: 2013Q3

REPORT INFORMATION
  Report Type: Spontaneous
  Country: US (occurrence: None)
  Receive Date: 20130722
  Receipt Date: 20130722
  Transmission Date: 20140515
  Serious: No
  Sender: FDA-Public Use
  Company Number: None

PATIENT
  Age: 60 None
  Sex: Male

DRUGS (1)
  1. LAMIVUDINE/ZIDOVUDINE [Suspect]
     Route: 048
     Dates: start: 20130614, end: 20130711

REACTIONS (5)
  - Dyspepsia [None]
  - Abdominal distension [None]
  - Diarrhoea [None]
  - Feeling hot [None]
  - Product substitution issue [None]
